FAERS Safety Report 16357777 (Version 1)
Quarter: 2019Q2

REPORT INFORMATION
  Report Type: Report from Study
  Country: US (occurrence: US)
  Receive Date: 20190527
  Receipt Date: 20190527
  Transmission Date: 20190711
  Serious: Yes (Other)
  Sender: FDA-Public Use
  Company Number: US-HORIZON-KRY-0327-2019

PATIENT
  Age: 64 Year
  Sex: Male

DRUGS (1)
  1. KRYSTEXXA [Suspect]
     Active Substance: PEGLOTICASE
     Indication: PRODUCT USED FOR UNKNOWN INDICATION

REACTIONS (4)
  - Swollen tongue [Recovering/Resolving]
  - Hypersensitivity [Recovering/Resolving]
  - Lip swelling [Recovering/Resolving]
  - Blood uric acid increased [Unknown]
